FAERS Safety Report 5201090-9 (Version None)
Quarter: 2007Q1

REPORT INFORMATION
  Report Type: 
  Country: None (occurrence: None)
  Receive Date: 20070103
  Receipt Date: 20061227
  Transmission Date: 20070707
  Serious: Yes (Death)
  Sender: FDA-Public Use
  Company Number: 234341

PATIENT
  Age: 65 Year
  Sex: Male

DRUGS (2)
  1. GRTPA (ALTEPLASE) PWDR + SOLVENT, INFUSION SOLN [Suspect]
     Indication: CEREBRAL ARTERY EMBOLISM
     Dosage: 31.9 ML, SINGLE, INTRAVENOUS
     Route: 042
     Dates: start: 20060329
  2. NICARDIPINE HYDROCHLORIDE [Concomitant]

REACTIONS (5)
  - BRAIN HERNIATION [None]
  - BRAIN OEDEMA [None]
  - CEREBRAL INFARCTION [None]
  - HAEMORRHAGIC CEREBRAL INFARCTION [None]
  - RESPIRATORY FAILURE [None]
